FAERS Safety Report 5071876-2 (Version None)
Quarter: 2006Q3

REPORT INFORMATION
  Report Type: 
  Country: None (occurrence: None)
  Receive Date: 20060801
  Receipt Date: 20060714
  Transmission Date: 20061208
  Serious: Yes (Hospitalization)
  Sender: FDA-Public Use
  Company Number: US200607002431

PATIENT
  Age: 49 Year
  Sex: Male

DRUGS (2)
  1. HUMALOG LISPRO 50% LISPRO, 50% NPL (LISPRO, 50% LISPRO, 50%  NPL) PEN, [Suspect]
     Indication: DIABETES MELLITUS
     Dates: start: 20060601, end: 20060101
  2. HUMULIN 50/50 PEN (HUMULIN 50/50 PEN) PEN,DISPOSABLE [Concomitant]

REACTIONS (1)
  - CEREBROVASCULAR ACCIDENT [None]
